FAERS Safety Report 8161258-9 (Version None)
Quarter: 2012Q1

REPORT INFORMATION
  Report Type: 
  Country: None (occurrence: None)
  Receive Date: 20120222
  Receipt Date: 20120222
  Transmission Date: 20120608
  Serious: No
  Sender: FDA-Public Use
  Company Number: None

PATIENT
  Sex: Male
  Weight: 97.5234 kg

DRUGS (1)
  1. PRADAXA [Suspect]
     Indication: ATRIAL FIBRILLATION
     Dosage: 150 MG BID ORAL
     Route: 048
     Dates: start: 20120110

REACTIONS (4)
  - DYSPEPSIA [None]
  - RECTAL HAEMORRHAGE [None]
  - NO THERAPEUTIC RESPONSE [None]
  - ANORECTAL DISCOMFORT [None]
